FAERS Safety Report 20695686 (Version 4)
Quarter: 2022Q2

REPORT INFORMATION
  Report Type: Spontaneous
  Country: TW (occurrence: TW)
  Receive Date: 20220411
  Receipt Date: 20220511
  Transmission Date: 20220721
  Serious: Yes (Life-Threatening, Hospitalization, Other)
  Sender: FDA-Public Use
  Company Number: TW-MLMSERVICE-20220330-3466295-1

PATIENT
  Age: 60 Year
  Sex: Male
  Weight: 80 kg

DRUGS (14)
  1. SPIRONOLACTONE [Suspect]
     Active Substance: SPIRONOLACTONE
     Dosage: 25 MG, BID
     Dates: end: 2020
  2. ASPIRIN [Suspect]
     Active Substance: ASPIRIN
     Dosage: 100 MG, QD
     Dates: end: 20200228
  3. ISOSORBIDE MONONITRATE [Suspect]
     Active Substance: ISOSORBIDE MONONITRATE
     Dosage: 20 MG, BID
     Dates: end: 20200228
  4. PLAVIX [Suspect]
     Active Substance: CLOPIDOGREL BISULFATE
     Dosage: 75 MG, QD
     Dates: end: 20200228
  5. FUROSEMIDE [Suspect]
     Active Substance: FUROSEMIDE
     Dosage: 40 MG, QD
     Dates: end: 20200228
  6. AMARYL [Suspect]
     Active Substance: GLIMEPIRIDE
     Dosage: 2 MG, TID(BEFORE MEALS (TID AC)
  7. AMARYL [Suspect]
     Active Substance: GLIMEPIRIDE
     Dosage: (2TAB QDA)
     Dates: end: 20200301
  8. AMLODIPINE [Suspect]
     Active Substance: AMLODIPINE BESYLATE
     Dosage: 5 MG, BID
  9. VALSARTAN [Suspect]
     Active Substance: VALSARTAN
     Dosage: 80 MG, QD
     Dates: end: 20200228
  10. PIOGLITAZONE [Suspect]
     Active Substance: PIOGLITAZONE
     Dosage: 30 MG, QD
     Dates: end: 20200228
  11. PIOGLITAZONE [Suspect]
     Active Substance: PIOGLITAZONE
     Dosage: 0.5 MG, QD
     Dates: end: 20200228
  12. BISOPROLOL [Suspect]
     Active Substance: BISOPROLOL
     Dosage: 1.25 MG, QD
     Dates: end: 2020
  13. CANAGLIFLOZIN [Suspect]
     Active Substance: CANAGLIFLOZIN
     Dosage: 100 NG, QD
     Dates: end: 20200228
  14. HYDRALAZINE [Suspect]
     Active Substance: HYDRALAZINE HYDROCHLORIDE
     Dosage: 10 MG, TID(AFTER MEALS)
     Dates: end: 20200228

REACTIONS (9)
  - Cardiac failure congestive [Recovered/Resolved]
  - Left ventricular hypertrophy [Recovered/Resolved]
  - Left atrial enlargement [Recovered/Resolved]
  - Multiple drug therapy [Recovered/Resolved]
  - Pneumothorax [Recovered/Resolved]
  - Oedema [Recovered/Resolved]
  - Dyspnoea [Recovered/Resolved]
  - Renal impairment [Recovered/Resolved]
  - Hydronephrosis [Recovered/Resolved]

NARRATIVE: CASE EVENT DATE: 20200201
